FAERS Safety Report 7881891-9 (Version None)
Quarter: 2011Q4

REPORT INFORMATION
  Report Type: 
  Country: None (occurrence: None)
  Receive Date: 20111101
  Receipt Date: 20110602
  Transmission Date: 20120403
  Serious: No
  Sender: FDA-Public Use
  Company Number: US-AMGEN-USASP2011028793

PATIENT
  Sex: Female

DRUGS (2)
  1. ENBREL [Suspect]
     Indication: RHEUMATOID ARTHRITIS
     Dosage: 50 MG, QWK
     Dates: start: 20110301
  2. OXYCODONE HCL [Concomitant]

REACTIONS (5)
  - MOBILITY DECREASED [None]
  - ASTHENIA [None]
  - NAUSEA [None]
  - DYSPNOEA [None]
  - FEELING HOT [None]
